FAERS Safety Report 4974839-8 (Version None)
Quarter: 2006Q1

REPORT INFORMATION
  Report Type: 
  Country: None (occurrence: None)
  Receive Date: 20060227
  Receipt Date: 20050418
  Transmission Date: 20060701
  Serious: Yes (Death)
  Sender: FDA-Public Use
  Company Number: 05P-163-0297721-00

PATIENT
  Sex: 0
  Weight: 10 kg

DRUGS (1)
  1. HYDROCODONE (VICODIN)(HYDROCODONE/ACETAMINOPHEN) (HYDROCODONE / ACETAM [Suspect]
     Dosage: PER ORAL
     Route: 048

REACTIONS (1)
  - DRUG TOXICITY [None]
